FAERS Safety Report 7727711-4 (Version None)
Quarter: 2011Q3

REPORT INFORMATION
  Report Type: 
  Country: None (occurrence: None)
  Receive Date: 20110902
  Receipt Date: 20110824
  Transmission Date: 20111222
  Serious: Yes (Hospitalization, Other)
  Sender: FDA-Public Use
  Company Number: US-ASTRAZENECA-2010SE26857

PATIENT
  Age: 52 Year
  Sex: Female
  Weight: 70.3 kg

DRUGS (17)
  1. HYDROXAZONE [Concomitant]
  2. SIMVASTATIN [Concomitant]
     Indication: HYPERCHOLESTEROLAEMIA
  3. SEROQUEL [Suspect]
     Indication: POST-TRAUMATIC STRESS DISORDER
     Route: 048
     Dates: start: 20080101, end: 20100401
  4. CLONIDINE [Concomitant]
     Indication: BLOOD PRESSURE
  5. EMEPROZOLE [Concomitant]
     Indication: GASTRIC PH INCREASED
  6. TRAMADOL HYDROCHLORIDE [Concomitant]
  7. SEROQUEL [Suspect]
     Indication: INSOMNIA
     Route: 048
     Dates: start: 20080101, end: 20100401
  8. SEROQUEL [Suspect]
     Route: 048
     Dates: start: 20100401, end: 20100501
  9. SEROQUEL [Suspect]
     Route: 048
     Dates: start: 20100401, end: 20100501
  10. SEROQUEL [Suspect]
     Indication: DEPRESSION
     Route: 048
     Dates: start: 20080101, end: 20100401
  11. SEROQUEL [Suspect]
     Indication: ANXIETY
     Route: 048
     Dates: start: 20080101, end: 20100401
  12. CYMBALTA [Concomitant]
     Indication: DEPRESSION
  13. SEROQUEL [Suspect]
     Route: 048
     Dates: start: 20100401, end: 20100501
  14. SEROQUEL [Suspect]
     Route: 048
     Dates: start: 20100401, end: 20100501
  15. PRENATAL VITAMINS [Concomitant]
     Indication: VITAMIN SUPPLEMENTATION
     Dosage: DAILY
  16. PRILOSEC [Concomitant]
     Route: 048
  17. CYCLOBENZINE [Concomitant]
     Indication: BACK PAIN

REACTIONS (18)
  - NECK INJURY [None]
  - VOMITING [None]
  - HAND FRACTURE [None]
  - INSOMNIA [None]
  - ABDOMINAL PAIN UPPER [None]
  - MENTAL DISORDER [None]
  - BACK INJURY [None]
  - HEADACHE [None]
  - DRUG DOSE OMISSION [None]
  - PSYCHOTHERAPY [None]
  - CRYING [None]
  - UPPER LIMB FRACTURE [None]
  - FALL [None]
  - MULTIPLE FRACTURES [None]
  - HYPERHIDROSIS [None]
  - WITHDRAWAL SYNDROME [None]
  - ANKLE FRACTURE [None]
  - MULTIPLE INJURIES [None]
